FAERS Safety Report 8599531-2 (Version None)
Quarter: 2012Q3

REPORT INFORMATION
  Report Type: 
  Country: None (occurrence: None)
  Receive Date: 20120802
  Receipt Date: 20120717
  Transmission Date: 20120928
  Serious: Yes (Hospitalization)
  Sender: FDA-Public Use
  Company Number: AE-AMP-2012-015

PATIENT

DRUGS (1)
  1. AMPICILLIN AND SULBACTAM [Suspect]

REACTIONS (2)
  - HAEMATOCHEZIA [None]
  - DIARRHOEA [None]
